FAERS Safety Report 4654707-1 (Version None)
Quarter: 2005Q2

REPORT INFORMATION
  Report Type: 
  Country: None (occurrence: None)
  Receive Date: 20050505
  Receipt Date: 20050505
  Transmission Date: 20051028
  Serious: Yes (Hospitalization)
  Sender: FDA-Public Use
  Company Number: None

PATIENT
  Sex: Male
  Weight: 83.9154 kg

DRUGS (2)
  1. IRINOTECAN HCL [Suspect]
     Indication: RECTAL CANCER
     Dosage: 50MG/M2   WEEKLY   INTRAVENOU
     Route: 042
     Dates: start: 20050308, end: 20050322
  2. XELODA [Suspect]
     Indication: RECTAL CANCER
     Dosage: 1250MG/N2   DAILY   ORAL
     Route: 048
     Dates: start: 20050306, end: 20050414

REACTIONS (3)
  - CHEST PAIN [None]
  - CHRONIC OBSTRUCTIVE PULMONARY DISEASE [None]
  - WHITE BLOOD CELL COUNT DECREASED [None]
